FAERS Safety Report 6310263-3 (Version None)
Quarter: 2009Q3

REPORT INFORMATION
  Report Type: 
  Country: None (occurrence: None)
  Receive Date: 20090811
  Receipt Date: 20090728
  Transmission Date: 20100115
  Serious: Yes (Death, Hospitalization)
  Sender: FDA-Public Use
  Company Number: KV200800167

PATIENT
  Age: 50 Year
  Sex: Male
  Weight: 113.4 kg

DRUGS (2)
  1. MORPHINE SULFATE [Suspect]
     Indication: PAIN
     Dosage: 240 MG, BID (4 TABS TWICE DAILY), ORAL
     Route: 048
     Dates: start: 20070301, end: 20080301
  2. OXYGEN (OXYGEN) [Concomitant]

REACTIONS (6)
  - AGITATION [None]
  - HEPATIC CIRRHOSIS [None]
  - PNEUMONIA [None]
  - PNEUMONIA ASPIRATION [None]
  - PRODUCT QUALITY ISSUE [None]
  - RESPIRATORY DISORDER [None]
